FAERS Safety Report 7716699-8 (Version None)
Quarter: 2011Q3

REPORT INFORMATION
  Report Type: 
  Country: None (occurrence: None)
  Receive Date: 20110829
  Receipt Date: 20110826
  Transmission Date: 20111222
  Serious: Yes (Death, Hospitalization)
  Sender: FDA-Public Use
  Company Number: MX-CEPHALON-2011001341

PATIENT
  Sex: Male
  Weight: 39 kg

DRUGS (3)
  1. RANITIDINE [Concomitant]
     Dates: start: 20110302, end: 20110316
  2. ALLOPURINOL [Concomitant]
     Dates: start: 20110303, end: 20110316
  3. TREANDA [Suspect]
     Indication: ACUTE MYELOID LEUKAEMIA
     Route: 041
     Dates: start: 20110314, end: 20110315

REACTIONS (4)
  - ACUTE MYELOID LEUKAEMIA [None]
  - ANAL FISSURE [None]
  - PYREXIA [None]
  - NEUTROPENIA [None]
